FAERS Safety Report 7088090-1 (Version None)
Quarter: 2010Q4

REPORT INFORMATION
  Report Type: 
  Country: None (occurrence: None)
  Receive Date: 20101108
  Receipt Date: 20101025
  Transmission Date: 20110411
  Serious: Yes (Hospitalization)
  Sender: FDA-Public Use
  Company Number: US-ELI_LILLY_AND_COMPANY-US201008006692

PATIENT
  Sex: Female

DRUGS (1)
  1. FORTEO [Suspect]
     Dosage: UNK, UNKNOWN

REACTIONS (7)
  - ARTHROPATHY [None]
  - BLOOD POTASSIUM INCREASED [None]
  - HYPOAESTHESIA [None]
  - MUSCLE SPASMS [None]
  - PAIN [None]
  - SLEEP DISORDER [None]
  - THERMAL BURN [None]
